FAERS Safety Report 14610581 (Version 1)
Quarter: 2018Q1

REPORT INFORMATION
  Report Type: Report from Study
  Country: None (occurrence: US)
  Receive Date: 20180307
  Receipt Date: 20180307
  Transmission Date: 20180509
  Serious: Yes (Other)
  Sender: FDA-Public Use
  Company Number: US-ABBVIE-17K-163-1963278-00

PATIENT
  Sex: Female

DRUGS (2)
  1. HUMIRA [Suspect]
     Active Substance: ADALIMUMAB
     Indication: PSORIATIC ARTHROPATHY
     Route: 058
     Dates: start: 20170427, end: 201708
  2. HUMIRA [Suspect]
     Active Substance: ADALIMUMAB
     Route: 058
     Dates: start: 201710

REACTIONS (24)
  - Gait disturbance [Recovering/Resolving]
  - Injection site pain [Recovered/Resolved]
  - Psoriatic arthropathy [Not Recovered/Not Resolved]
  - Tonsillitis [Recovered/Resolved]
  - Conjunctivitis [Recovered/Resolved]
  - Tympanic membrane perforation [Not Recovered/Not Resolved]
  - Dizziness [Not Recovered/Not Resolved]
  - Ear swelling [Not Recovered/Not Resolved]
  - Joint stiffness [Recovering/Resolving]
  - Pain in extremity [Unknown]
  - Diarrhoea [Unknown]
  - Dysstasia [Unknown]
  - Arthralgia [Recovering/Resolving]
  - Injection site pruritus [Not Recovered/Not Resolved]
  - Lower respiratory tract infection [Recovered/Resolved]
  - Loss of personal independence in daily activities [Unknown]
  - Upper respiratory tract infection bacterial [Recovered/Resolved]
  - Joint swelling [Recovering/Resolving]
  - Weight increased [Unknown]
  - Arthralgia [Not Recovered/Not Resolved]
  - Pain [Unknown]
  - Tendon disorder [Unknown]
  - Ankle fracture [Unknown]
  - Perioral dermatitis [Recovering/Resolving]

NARRATIVE: CASE EVENT DATE: 2017
